FAERS Safety Report 7459490-2 (Version None)
Quarter: 2011Q2

REPORT INFORMATION
  Report Type: 
  Country: None (occurrence: None)
  Receive Date: 20110505
  Receipt Date: 20110425
  Transmission Date: 20111010
  Serious: Yes (Hospitalization)
  Sender: FDA-Public Use
  Company Number: VE-GENZYME-CERZ-1001977

PATIENT
  Sex: Female

DRUGS (1)
  1. CEREZYME [Suspect]
     Indication: GAUCHER'S DISEASE
     Dosage: 6000 U, Q2W
     Route: 042
     Dates: start: 20080101

REACTIONS (1)
  - UTERINE LEIOMYOMA [None]
